FAERS Safety Report 5780018-7 (Version None)
Quarter: 2008Q2

REPORT INFORMATION
  Report Type: 
  Country: None (occurrence: None)
  Receive Date: 20080620
  Receipt Date: 20080617
  Transmission Date: 20081010
  Serious: Yes (Death, Life-Threatening, Hospitalization)
  Sender: FDA-Public Use
  Company Number: JP-BRISTOL-MYERS SQUIBB COMPANY-14221717

PATIENT
  Age: 77 Year
  Sex: Male
  Weight: 60 kg

DRUGS (15)
  1. BRIPLATIN [Suspect]
     Indication: PLEURAL MESOTHELIOMA MALIGNANT
     Route: 041
     Dates: start: 20080424, end: 20080424
  2. ALIMTA [Suspect]
     Indication: PLEURAL MESOTHELIOMA MALIGNANT
     Route: 041
     Dates: start: 20080424, end: 20080424
  3. PANVITAN [Concomitant]
     Route: 048
     Dates: start: 20080417, end: 20080512
  4. CYANOCOBALAMIN [Concomitant]
     Route: 030
     Dates: start: 20080417, end: 20080417
  5. AMARYL [Concomitant]
     Route: 048
     Dates: end: 20080501
  6. BASEN [Concomitant]
     Route: 048
     Dates: end: 20080501
  7. CELTECT [Concomitant]
     Route: 048
     Dates: end: 20080501
  8. BISOLVON [Concomitant]
     Route: 048
     Dates: end: 20080501
  9. OXYCONTIN [Concomitant]
     Route: 048
     Dates: start: 20080422, end: 20080427
  10. MAGNESIUM OXIDE [Concomitant]
     Route: 048
     Dates: start: 20080422, end: 20080501
  11. NOVAMIN [Concomitant]
     Route: 048
     Dates: start: 20080422, end: 20080501
  12. PRIMPERAN TAB [Concomitant]
     Route: 048
     Dates: start: 20080424, end: 20080428
  13. DEXAMETHASONE SODIUM PHOSPHATE [Concomitant]
     Route: 041
     Dates: start: 20080424, end: 20080425
  14. DECADRON [Concomitant]
     Route: 048
     Dates: start: 20080424, end: 20080428
  15. NASEA [Concomitant]
     Route: 041
     Dates: start: 20080424, end: 20080425

REACTIONS (6)
  - DEATH [None]
  - FEBRILE NEUTROPENIA [None]
  - INTERSTITIAL LUNG DISEASE [None]
  - LIVER DISORDER [None]
  - PLATELET COUNT DECREASED [None]
  - RENAL IMPAIRMENT [None]
